FAERS Safety Report 4960823-7 (Version None)
Quarter: 2006Q2

REPORT INFORMATION
  Report Type: 
  Country: None (occurrence: None)
  Receive Date: 20060403
  Receipt Date: 20051202
  Transmission Date: 20061013
  Serious: Yes (Hospitalization)
  Sender: FDA-Public Use
  Company Number: DE-ROCHE-427130

PATIENT
  Sex: Female

DRUGS (1)
  1. LARIAM [Suspect]
     Indication: MALARIA PROPHYLAXIS
     Dosage: FOR FIVE TO SIX WEEKS, BEGINNING THE END OF AUGUST 2005.
     Route: 065
     Dates: start: 20050825, end: 20051006

REACTIONS (2)
  - NEURALGIC AMYOTROPHY [None]
  - PARESIS [None]
